FAERS Safety Report 15859035 (Version 1)
Quarter: 2019Q1

REPORT INFORMATION
  Report Type: Spontaneous
  Country: US (occurrence: US)
  Receive Date: 20190123
  Receipt Date: 20190123
  Transmission Date: 20190417
  Serious: Yes (Other)
  Sender: FDA-Public Use
  Company Number: US-PFIZER INC-2019028010

PATIENT
  Age: 55 Year
  Sex: Female

DRUGS (4)
  1. MEDROL [Suspect]
     Active Substance: METHYLPREDNISOLONE
     Indication: PAIN
  2. MEDROL [Suspect]
     Active Substance: METHYLPREDNISOLONE
     Indication: RHEUMATOID ARTHRITIS
     Dosage: 4 DF, 1X/DAY (TAKES EITHER 2MG OR 2.5MG TABLETS, 4 PILLS ONCE A DAY)
     Route: 048
     Dates: start: 2018
  3. METHOTREXATE. [Concomitant]
     Active Substance: METHOTREXATE
     Indication: RHEUMATOID ARTHRITIS
  4. METHOTREXATE. [Concomitant]
     Active Substance: METHOTREXATE
     Indication: PAIN

REACTIONS (1)
  - Neoplasm malignant [Unknown]

NARRATIVE: CASE EVENT DATE: 20180609
